FAERS Safety Report 4769060-2 (Version None)
Quarter: 2005Q3

REPORT INFORMATION
  Report Type: 
  Country: None (occurrence: None)
  Receive Date: 20050914
  Receipt Date: 20050829
  Transmission Date: 20060218
  Serious: Yes (Other)
  Sender: FDA-Public Use
  Company Number: TRP_0383_2005

PATIENT
  Age: 57 Year
  Sex: Male
  Weight: 108.8633 kg

DRUGS (7)
  1. RIBASPHERE [Suspect]
     Indication: HEPATITIS C
     Dosage: DF PO
     Route: 048
     Dates: start: 20050310, end: 20050701
  2. PEG-INTRON [Suspect]
     Indication: HEPATITIS C
     Dosage: DF  SC
     Route: 058
     Dates: start: 20050310, end: 20050701
  3. GUAIFENESIN [Concomitant]
  4. HYDROCHLOROTHIAZIDE [Concomitant]
  5. LABETALOL HYDROCHLORIDE [Concomitant]
  6. LISINOPRIL [Concomitant]
  7. VITAMIN E [Concomitant]

REACTIONS (2)
  - LOSS OF CONSCIOUSNESS [None]
  - UNEVALUABLE EVENT [None]
